FAERS Safety Report 21703897 (Version 1)
Quarter: 2022Q4

REPORT INFORMATION
  Report Type: Report from Study
  Country: US (occurrence: US)
  Receive Date: 20221209
  Receipt Date: 20221209
  Transmission Date: 20230112
  Serious: No
  Sender: FDA-Public Use
  Company Number: US-ABBVIE-4209748

PATIENT
  Age: 41 Year
  Sex: Female

DRUGS (1)
  1. HUMIRA [Suspect]
     Active Substance: ADALIMUMAB
     Indication: Hidradenitis
     Dosage: CITRATE FREE
     Route: 058
     Dates: start: 20220923

REACTIONS (6)
  - Balance disorder [Unknown]
  - Sinus headache [Not Recovered/Not Resolved]
  - Paranasal sinus discomfort [Unknown]
  - Otorrhoea [Not Recovered/Not Resolved]
  - Photosensitivity reaction [Unknown]
  - Viral sinusitis [Unknown]

NARRATIVE: CASE EVENT DATE: 20221128
